FAERS Safety Report 23124627 (Version 1)
Quarter: 2023Q4

REPORT INFORMATION
  Report Type: Spontaneous
  Country: ES (occurrence: ES)
  Receive Date: 20231030
  Receipt Date: 20231030
  Transmission Date: 20240110
  Serious: Yes (Life-Threatening)
  Sender: FDA-Public Use
  Company Number: None

PATIENT
  Age: 71 Year
  Sex: Female

DRUGS (8)
  1. LEVOFLOXACIN [Suspect]
     Active Substance: LEVOFLOXACIN
     Indication: Arthritis infective
     Dosage: LEVOFLOXACINO (2791A)
     Dates: start: 20180628, end: 20180807
  2. HYDROCHLOROTHIAZIDE\IRBESARTAN [Concomitant]
     Active Substance: HYDROCHLOROTHIAZIDE\IRBESARTAN
     Indication: Hypertension
     Dosage: 28 TABLETS, FORM STRENGTH : 300 MG/12.5 MG
     Dates: start: 20120221
  3. FUROSEMIDE [Concomitant]
     Active Substance: FUROSEMIDE
     Indication: Cardiac failure
     Dates: start: 20180726
  4. LEVEMIR [Concomitant]
     Active Substance: INSULIN DETEMIR
     Indication: Diabetic ketoacidosis
     Dosage: 5 PRE-FILLED PENS OF 3 ML (FLEXPEN)
     Dates: start: 20161018
  5. SITAGLIPTIN [Concomitant]
     Active Substance: SITAGLIPTIN
     Indication: Diabetic ketoacidosis
     Dates: start: 20160129
  6. ACETAMINOPHEN [Concomitant]
     Active Substance: ACETAMINOPHEN
     Indication: Arthralgia
     Dates: start: 20160128
  7. PITAVASTATIN [Concomitant]
     Active Substance: PITAVASTATIN
     Indication: Diabetic ketoacidosis
     Dosage: 28 TABLET
     Dates: start: 20161121
  8. TENORMIN [Concomitant]
     Active Substance: ATENOLOL
     Indication: Hypertension
     Dosage: 60 TABLETS
     Dates: start: 20090606

REACTIONS (1)
  - Pancytopenia [Recovering/Resolving]

NARRATIVE: CASE EVENT DATE: 20180804
